FAERS Safety Report 6906700-3 (Version None)
Quarter: 2010Q3

REPORT INFORMATION
  Report Type: 
  Country: None (occurrence: None)
  Receive Date: 20100804
  Receipt Date: 20100720
  Transmission Date: 20110219
  Serious: Yes (Other)
  Sender: FDA-Public Use
  Company Number: CHPA2010US12523

PATIENT
  Age: 28 Year
  Sex: Female

DRUGS (7)
  1. SCOPOLAMINE (NCH) [Suspect]
     Indication: PROPHYLAXIS OF NAUSEA AND VOMITING
     Dosage: 1.5 MG, ONCE/SINGLE
     Route: 062
  2. CITALOPRAM [Suspect]
     Indication: DEPRESSION
  3. PROPOFOL [Suspect]
     Indication: PROCEDURAL PAIN
     Route: 042
  4. MIDAZOLAM HCL [Suspect]
  5. DEXAMETHASONE [Suspect]
  6. ONDANSETRON [Suspect]
  7. ^PERIPHERAL NERVE BLOCK^ [Suspect]
     Indication: PROCEDURAL PAIN

REACTIONS (4)
  - ANTICHOLINERGIC SYNDROME [None]
  - MYDRIASIS [None]
  - TACHYCARDIA [None]
  - UNRESPONSIVE TO STIMULI [None]
